FAERS Safety Report 9912616 (Version 1)
Quarter: 2014Q1

REPORT INFORMATION
  Report Type: Spontaneous
  Country: AT (occurrence: None)
  Receive Date: 20140212
  Receipt Date: 20140212
  Transmission Date: 20141002
  Serious: Yes (Hospitalization)
  Sender: FDA-Public Use
  Company Number: FK201400373

PATIENT
  Sex: Female

DRUGS (3)
  1. GRANISETRON [Suspect]
     Indication: ANTIEMETIC SUPPORTIVE CARE
  2. 5-AZACYTIDINE [Suspect]
     Indication: MYELODYSPLASTIC SYNDROME
     Route: 058
  3. ROMIPLOSTIM(ROMIPLOSTIUM) [Concomitant]

REACTIONS (5)
  - Colitis ischaemic [None]
  - Febrile neutropenia [None]
  - Off label use [None]
  - Acute myeloid leukaemia [None]
  - No therapeutic response [None]
